FAERS Safety Report 7008358-4 (Version None)
Quarter: 2010Q3

REPORT INFORMATION
  Report Type: 
  Country: None (occurrence: None)
  Receive Date: 20100922
  Receipt Date: 20100915
  Transmission Date: 20110219
  Serious: Yes (Hospitalization)
  Sender: FDA-Public Use
  Company Number: A0882338A

PATIENT
  Age: 64 Year
  Sex: Female
  Weight: 55.4 kg

DRUGS (19)
  1. FLOLAN [Suspect]
     Route: 042
     Dates: start: 20060608
  2. FLOLAN [Suspect]
     Route: 042
     Dates: start: 20060608
  3. ASPIRIN [Suspect]
     Dosage: 81MG PER DAY
     Route: 048
  4. ZOLOFT [Suspect]
     Indication: PRODUCT USED FOR UNKNOWN INDICATION
     Route: 065
  5. ASTELIN [Concomitant]
     Dosage: 137MCG UNKNOWN
     Route: 045
  6. CRESTOR [Concomitant]
     Dosage: 5MG UNKNOWN
     Route: 048
  7. MULTI-VITAMIN [Concomitant]
     Dosage: 1TAB PER DAY
     Route: 048
  8. FLONASE [Concomitant]
     Route: 045
  9. FUROSEMIDE [Concomitant]
     Dosage: 40MG UNKNOWN
     Route: 048
  10. IMODIUM [Concomitant]
     Dosage: 2MG UNKNOWN
     Route: 048
  11. KDUR [Concomitant]
     Dosage: 20MEQ UNKNOWN
     Route: 048
  12. LETAIRIS [Concomitant]
     Dosage: 10MG UNKNOWN
     Route: 048
  13. NEXIUM [Concomitant]
     Dosage: 4MG UNKNOWN
     Route: 048
  14. OXYGEN [Concomitant]
     Dosage: 3L AS DIRECTED
  15. RESTASIS [Concomitant]
     Route: 047
  16. SODIUM CHLORIDE [Concomitant]
  17. SPIRONOLACTONE [Concomitant]
     Dosage: 25MG UNKNOWN
     Route: 048
  18. SYNTHROID [Concomitant]
     Dosage: 125MCG UNKNOWN
     Route: 048
  19. TYLENOL [Concomitant]
     Dosage: 325MG UNKNOWN
     Route: 048

REACTIONS (4)
  - CONVULSION [None]
  - FALL [None]
  - IMPAIRED DRIVING ABILITY [None]
  - SUBDURAL HAEMATOMA [None]
